FAERS Safety Report 17996217 (Version 2)
Quarter: 2020Q3

REPORT INFORMATION
  Report Type: Report from Study
  Country: DE (occurrence: DE)
  Receive Date: 20200708
  Receipt Date: 20200723
  Transmission Date: 20201103
  Serious: Yes (Hospitalization, Other)
  Sender: FDA-Public Use
  Company Number: NVSC2020DE182468

PATIENT
  Sex: Female
  Weight: 70 kg

DRUGS (5)
  1. KISQALI [Suspect]
     Active Substance: RIBOCICLIB
     Indication: BREAST CANCER METASTATIC
     Dosage: 600 MG, QD (SCHEMA 21 DAYS INTAKE, 7 DAYS PAUSE)
     Route: 048
     Dates: start: 20190927, end: 20200217
  2. KISQALI [Suspect]
     Active Substance: RIBOCICLIB
     Dosage: UNK
     Route: 065
     Dates: start: 20200422
  3. KISQALI [Suspect]
     Active Substance: RIBOCICLIB
     Dosage: 400 MG, QD (SCHEMA 21 DAYS INTAKE, 7 DAYS PAUSE)
     Route: 065
     Dates: start: 20200218
  4. LETROZOLE. [Suspect]
     Active Substance: LETROZOLE
     Indication: BREAST CANCER METASTATIC
     Dosage: 2.5 MG, QD
     Route: 065
     Dates: start: 20190927
  5. LUTEINIZING HORMONE?RELEASING HORMONE [Concomitant]
     Active Substance: GONADORELIN
     Indication: BREAST CANCER METASTATIC
     Dosage: 3.6 MG, QD (EVERY 4 WEEKS)
     Route: 058
     Dates: start: 20190926

REACTIONS (3)
  - Pelvic cyst [Recovered/Resolved]
  - Paraplegia [Not Recovered/Not Resolved]
  - White matter lesion [Recovering/Resolving]

NARRATIVE: CASE EVENT DATE: 20200422
